FAERS Safety Report 10233307 (Version 1)
Quarter: 2014Q2

REPORT INFORMATION
  Report Type: Spontaneous
  Country: US (occurrence: US)
  Receive Date: 20140612
  Receipt Date: 20140612
  Transmission Date: 20141212
  Serious: No
  Sender: FDA-Public Use
  Company Number: US-B.I. PHARMACEUTICALS,INC./RIDGEFIELD-2014-BI-24896BP

PATIENT
  Sex: Male
  Weight: 79 kg

DRUGS (3)
  1. COMBIVENT [Suspect]
     Indication: ASTHMA
     Dosage: DOSE PER APPLICATION: 20 MCG/100 MCG, DAILY DOSE: 80 MCG/400 MCG
     Route: 055
     Dates: start: 2011
  2. TRAMADOL [Concomitant]
     Indication: NECK PAIN
     Route: 065
  3. MULTIVITAMIN [Concomitant]
     Indication: ROUTINE HEALTH MAINTENANCE
     Route: 065

REACTIONS (2)
  - Off label use [Unknown]
  - Overdose [Not Recovered/Not Resolved]
